FAERS Safety Report 6793489-4 (Version None)
Quarter: 2010Q2

REPORT INFORMATION
  Report Type: 
  Country: None (occurrence: None)
  Receive Date: 20100624
  Receipt Date: 20100423
  Transmission Date: 20101027
  Serious: Yes (Other)
  Sender: FDA-Public Use
  Company Number: US-MYLANLABS-2010S1006349

PATIENT
  Age: 45 Year
  Sex: Male

DRUGS (3)
  1. CLOZAPINE [Suspect]
     Dates: end: 20100101
  2. REVLIMID [Suspect]
  3. CHEMOTHERAPEUTICS NOS [Concomitant]
     Dates: start: 20100201

REACTIONS (2)
  - GRANULOCYTOPENIA [None]
  - LEUKOPENIA [None]
